FAERS Safety Report 21718886 (Version 1)
Quarter: 2022Q4

REPORT INFORMATION
  Report Type: Report from Study
  Country: FR (occurrence: None)
  Receive Date: 20221213
  Receipt Date: 20221213
  Transmission Date: 20230113
  Serious: Yes (Death)
  Sender: FDA-Public Use
  Company Number: 2022A399806

PATIENT
  Sex: Male
  Weight: 70 kg

DRUGS (1)
  1. EVUSHELD [Suspect]
     Active Substance: CILGAVIMAB\TIXAGEVIMAB
     Indication: COVID-19 prophylaxis
     Route: 030
     Dates: start: 20220406, end: 20220406

REACTIONS (4)
  - Gas gangrene [Fatal]
  - Hepatic gas gangrene [Fatal]
  - Septic shock [Fatal]
  - Therapy partial responder [Unknown]
